FAERS Safety Report 7010339-1 (Version None)
Quarter: 2010Q3

REPORT INFORMATION
  Report Type: 
  Country: None (occurrence: None)
  Receive Date: 20100923
  Receipt Date: 20100915
  Transmission Date: 20110219
  Serious: Yes (Other)
  Sender: FDA-Public Use
  Company Number: B0675926A

PATIENT
  Age: 15 Year
  Sex: Male

DRUGS (11)
  1. ETOPOSIDE [Suspect]
     Dosage: 150MGM2 PER DAY
     Route: 065
  2. THIOGUANINE [Suspect]
     Dosage: 40MGM2 PER DAY
  3. NEUPOGEN [Suspect]
  4. ARA-C [Suspect]
     Dosage: 40MGM2 PER DAY
  5. THIOGUANINE [Suspect]
  6. UNKNOWN DRUG [Suspect]
  7. IDARUBICIN HCL [Suspect]
     Dosage: 7MGM2 PER DAY
  8. MITOXANTRONE [Suspect]
     Dosage: 10MGM2 PER DAY
  9. AMPHOTERICIN B [Concomitant]
     Route: 042
  10. NYSTATIN [Concomitant]
  11. COTRIM [Concomitant]

REACTIONS (14)
  - BLINDNESS [None]
  - EYE INFECTION FUNGAL [None]
  - NEUTROPENIA [None]
  - PANCREATITIS ACUTE [None]
  - PANCYTOPENIA [None]
  - PNEUMONIA [None]
  - PYREXIA [None]
  - RENAL FAILURE ACUTE [None]
  - RESPIRATORY DISORDER [None]
  - RETINAL OEDEMA [None]
  - SEPSIS [None]
  - THROMBOCYTOPENIA [None]
  - VISUAL ACUITY REDUCED [None]
  - VITREOUS HAEMORRHAGE [None]
